FAERS Safety Report 10508430 (Version 1)
Quarter: 2014Q4

REPORT INFORMATION
  Report Type: Spontaneous
  Country: US (occurrence: None)
  Receive Date: 20141007
  Receipt Date: 20141007
  Transmission Date: 20150528
  Serious: Yes (Other)
  Sender: FDA-Public Use
  Company Number: 2014EXPUS00248

PATIENT
  Age: 80 Year
  Sex: Female

DRUGS (1)
  1. EXPAREL [Suspect]
     Active Substance: BUPIVACAINE
     Indication: POSTOPERATIVE ANALGESIA
     Dates: start: 201409, end: 201409

REACTIONS (3)
  - Myocardial infarction [None]
  - Presyncope [None]
  - Syncope [None]

NARRATIVE: CASE EVENT DATE: 201409
